FAERS Safety Report 6998424-1 (Version None)
Quarter: 2010Q3

REPORT INFORMATION
  Report Type: 
  Country: None (occurrence: None)
  Receive Date: 20100920
  Receipt Date: 20100909
  Transmission Date: 20110219
  Serious: Yes (Hospitalization)
  Sender: FDA-Public Use
  Company Number: US-JNJFOC-20100903531

PATIENT
  Sex: Female
  Weight: 57.15 kg

DRUGS (6)
  1. DURAGESIC-100 [Suspect]
     Indication: ARTHRALGIA
     Route: 062
  2. DURAGESIC-100 [Suspect]
     Route: 062
  3. FENTANYL CITRATE [Suspect]
     Indication: ARTHRALGIA
     Route: 062
  4. DURAGESIC-100 [Suspect]
     Route: 062
  5. PLAVIX [Concomitant]
     Indication: ANTICOAGULANT THERAPY
     Route: 048
  6. UNSPECIFED MEDICATIONS [Concomitant]
     Indication: PRODUCT USED FOR UNKNOWN INDICATION
     Route: 065

REACTIONS (5)
  - CARDIAC DISORDER [None]
  - DRUG EFFECT DECREASED [None]
  - FALL [None]
  - HIP ARTHROPLASTY [None]
  - PAIN [None]
